FAERS Safety Report 5741358-0 (Version None)
Quarter: 2008Q2

REPORT INFORMATION
  Report Type: 
  Country: None (occurrence: None)
  Receive Date: 20080514
  Receipt Date: 20080507
  Transmission Date: 20081010
  Serious: Yes (Other)
  Sender: FDA-Public Use
  Company Number: 2008012085

PATIENT
  Sex: Female

DRUGS (1)
  1. LISTERINE STAY WHITE (MENTHOL, METHYL SALICYLATE, EUCALYPTOL, THYMOL) [Suspect]
     Dosage: UNSPECIFIED, ORAL
     Route: 048

REACTIONS (3)
  - CHEILITIS [None]
  - LIP PAIN [None]
  - LIP SWELLING [None]
